FAERS Safety Report 12763383 (Version 1)
Quarter: 2016Q3

REPORT INFORMATION
  Report Type: Spontaneous
  Country: US (occurrence: US)
  Receive Date: 20160919
  Receipt Date: 20160919
  Transmission Date: 20161109
  Serious: No
  Sender: FDA-Public Use
  Company Number: None

PATIENT
  Age: 45 Year
  Sex: Female
  Weight: 63 kg

DRUGS (4)
  1. HYOSCYAMINE SULFATE 0.125 [Suspect]
     Active Substance: HYOSCYAMINE SULFATE
     Indication: IRRITABLE BOWEL SYNDROME
     Route: 048
     Dates: start: 20160801, end: 20160918
  2. VITAMIN B12 [Concomitant]
     Active Substance: CYANOCOBALAMIN
  3. VITAMIN C [Concomitant]
     Active Substance: ASCORBIC ACID
  4. BIOTIN [Concomitant]
     Active Substance: BIOTIN

REACTIONS (5)
  - Dry mouth [None]
  - Vision blurred [None]
  - Rash [None]
  - Dry skin [None]
  - Dysuria [None]
